FAERS Safety Report 24385803 (Version 4)
Quarter: 2024Q4

REPORT INFORMATION
  Report Type: Report from Study
  Country: GR (occurrence: GR)
  Receive Date: 20241001
  Receipt Date: 20241230
  Transmission Date: 20250115
  Serious: Yes (Hospitalization)
  Sender: TAKEDA
  Company Number: GR-TAKEDA-GR202013537

PATIENT
  Age: 48 Year
  Sex: Female

DRUGS (7)
  1. PARATHYROID HORMONE [Suspect]
     Active Substance: PARATHYROID HORMONE
     Indication: Autoimmune hypoparathyroidism
     Dosage: 75 MICROGRAM, QD
     Dates: start: 20181127
  2. PARATHYROID HORMONE [Suspect]
     Active Substance: PARATHYROID HORMONE
     Indication: Hypoparathyroidism
     Dosage: 100 MICROGRAM, QD
  3. PARATHYROID HORMONE [Suspect]
     Active Substance: PARATHYROID HORMONE
     Dosage: 100 MILLIGRAM, QD
  4. PARATHYROID HORMONE [Suspect]
     Active Substance: PARATHYROID HORMONE
     Dosage: 100 MILLIGRAM, QD
  5. PARATHYROID HORMONE [Suspect]
     Active Substance: PARATHYROID HORMONE
     Dosage: UNK
  6. PARATHYROID HORMONE [Suspect]
     Active Substance: PARATHYROID HORMONE
     Dosage: 100 MILLIGRAM, QD
     Dates: end: 20241004
  7. CALCIUM CARBONATE\CHOLECALCIFEROL [Concomitant]
     Active Substance: CALCIUM CARBONATE\CHOLECALCIFEROL
     Indication: Calcium deficiency
     Dosage: UNK

REACTIONS (10)
  - Blood calcium decreased [Unknown]
  - Device malfunction [Recovered/Resolved]
  - Device occlusion [Recovering/Resolving]
  - Device difficult to use [Recovering/Resolving]
  - Drug ineffective [Unknown]
  - Expired product administered [Not Recovered/Not Resolved]
  - Device use issue [Not Recovered/Not Resolved]
  - Product dose omission issue [Not Recovered/Not Resolved]
  - Extra dose administered [Unknown]
  - Device dispensing error [Not Recovered/Not Resolved]

NARRATIVE: CASE EVENT DATE: 20181127
